FAERS Safety Report 11526977 (Version 1)
Quarter: 2015Q3

REPORT INFORMATION
  Report Type: Spontaneous
  Country: US (occurrence: US)
  Receive Date: 20150903
  Receipt Date: 20150903
  Transmission Date: 20151125
  Serious: No
  Sender: FDA-Public Use
  Company Number: US-ELI_LILLY_AND_COMPANY-US201310010441

PATIENT
  Sex: Male

DRUGS (1)
  1. CYMBALTA [Suspect]
     Active Substance: DULOXETINE HYDROCHLORIDE
     Indication: DEPRESSION
     Dosage: UNK, UNKNOWN
     Route: 065

REACTIONS (10)
  - Drug withdrawal syndrome [Unknown]
  - Vomiting [Unknown]
  - Pain in extremity [Unknown]
  - Tremor [Unknown]
  - Nausea [Unknown]
  - Back pain [Unknown]
  - Headache [Unknown]
  - Tinnitus [Unknown]
  - Hypoaesthesia [Unknown]
  - Myalgia [Unknown]
